FAERS Safety Report 5855968-3 (Version None)
Quarter: 2008Q3

REPORT INFORMATION
  Report Type: 
  Country: None (occurrence: None)
  Receive Date: 20080825
  Receipt Date: 20080813
  Transmission Date: 20090109
  Serious: Yes (Hospitalization)
  Sender: FDA-Public Use
  Company Number: BR-NOVOPROD-278670

PATIENT
  Age: 52 Year
  Sex: Male
  Weight: 76 kg

DRUGS (2)
  1. NOVOLOG MIX 70/30 [Suspect]
     Indication: DIABETES MELLITUS
     Dosage: 16 IU IN THE MORNING AND 14 IU AT NIGHT
     Dates: start: 20080701
  2. HIDROCLOROTIAZIDE [Concomitant]
     Indication: HYPERTENSION
     Dosage: 1 TAB, QD
     Route: 048

REACTIONS (3)
  - BLOOD GLUCOSE FLUCTUATION [None]
  - GASTROINTESTINAL SURGERY [None]
  - WEIGHT FLUCTUATION [None]
